FAERS Safety Report 19061509 (Version 1)
Quarter: 2021Q1

REPORT INFORMATION
  Report Type: Other
  Country: US (occurrence: US)
  Receive Date: 20210326
  Receipt Date: 20210326
  Transmission Date: 20210420
  Serious: Yes (Other)
  Sender: FDA-Public Use
  Company Number: US-ROCHE-2796055

PATIENT

DRUGS (6)
  1. NIVOLUMAB [Suspect]
     Active Substance: NIVOLUMAB
     Indication: MALIGNANT MELANOMA
     Route: 065
  2. ATEZOLIZUMAB. [Suspect]
     Active Substance: ATEZOLIZUMAB
     Indication: MALIGNANT MELANOMA
     Route: 065
  3. IPILIMUMAB [Suspect]
     Active Substance: IPILIMUMAB
     Indication: MALIGNANT MELANOMA
     Route: 065
  4. AVELUMAB [Suspect]
     Active Substance: AVELUMAB
     Indication: MALIGNANT MELANOMA
     Route: 065
  5. DURVALUMAB. [Suspect]
     Active Substance: DURVALUMAB
     Indication: MALIGNANT MELANOMA
     Route: 065
  6. PEMBROLIZUMAB. [Suspect]
     Active Substance: PEMBROLIZUMAB
     Indication: MALIGNANT MELANOMA
     Route: 065

REACTIONS (12)
  - Optic atrophy [Unknown]
  - Iridocyclitis [Unknown]
  - Papilloedema [Unknown]
  - Orbital apex syndrome [Unknown]
  - Uveitis [Unknown]
  - Optic neuritis [Unknown]
  - Scleritis [Unknown]
  - Optic neuropathy [Unknown]
  - Parophthalmia [Unknown]
  - Myasthenia gravis [Unknown]
  - Endocrine ophthalmopathy [Unknown]
  - Hypophysitis [Unknown]
